FAERS Safety Report 7022596-6 (Version None)
Quarter: 2010Q3

REPORT INFORMATION
  Report Type: 
  Country: None (occurrence: None)
  Receive Date: 20100930
  Receipt Date: 20100921
  Transmission Date: 20110219
  Serious: Yes (Other)
  Sender: FDA-Public Use
  Company Number: HK-PFIZER INC-2010119878

PATIENT
  Age: 43 Year
  Sex: Male

DRUGS (1)
  1. SUTENT [Suspect]
     Indication: PANCREATIC NEUROENDOCRINE TUMOUR
     Dosage: 50 MG, 1X/DAY, 4 WEEKS THEN REST FOR 2 WEEKS
     Route: 048
     Dates: start: 20080701

REACTIONS (6)
  - ABDOMINAL DISCOMFORT [None]
  - DERMATITIS EXFOLIATIVE [None]
  - DIARRHOEA [None]
  - HYPERTENSION [None]
  - MALAISE [None]
  - THROMBOCYTOPENIA [None]
